FAERS Safety Report 25968376 (Version 1)
Quarter: 2025Q4

REPORT INFORMATION
  Report Type: Spontaneous
  Country: CN (occurrence: CN)
  Receive Date: 20251028
  Receipt Date: 20251028
  Transmission Date: 20260117
  Serious: Yes (Other)
  Sender: RANBAXY
  Company Number: CN-SUN PHARMACEUTICAL INDUSTRIES LTD-2025R1-533581

PATIENT
  Age: 52 Year
  Sex: Male
  Weight: 178 kg

DRUGS (5)
  1. ACARBOSE [Suspect]
     Active Substance: ACARBOSE
     Indication: Type 1 diabetes mellitus
     Dosage: UNK
     Route: 065
  2. DAPAGLIFLOZIN [Suspect]
     Active Substance: DAPAGLIFLOZIN
     Indication: Type 1 diabetes mellitus
     Dosage: 5 MILLIGRAM, DAILY
     Route: 065
  3. METFORMIN [Suspect]
     Active Substance: METFORMIN HYDROCHLORIDE
     Indication: Type 1 diabetes mellitus
     Dosage: UNK
     Route: 048
  4. INSULIN GLARGINE [Concomitant]
     Active Substance: INSULIN GLARGINE
     Indication: Type 1 diabetes mellitus
     Dosage: UNK (26 U PRE-BREAKFAST, 8 U AT BEDTIME)
     Route: 065
  5. INSULIN LISPRO [Concomitant]
     Active Substance: INSULIN LISPRO
     Indication: Type 1 diabetes mellitus
     Dosage: UNK (15 U-6 U-11 U)
     Route: 065

REACTIONS (2)
  - Gene mutation [Unknown]
  - Insulin resistance [Unknown]
